FAERS Safety Report 4982473-9 (Version None)
Quarter: 2006Q2

REPORT INFORMATION
  Report Type: 
  Country: None (occurrence: None)
  Receive Date: 20060421
  Receipt Date: 20060412
  Transmission Date: 20061013
  Serious: Yes (Other)
  Sender: FDA-Public Use
  Company Number: 2006050960

PATIENT
  Sex: Female

DRUGS (1)
  1. SINEQUAN [Suspect]
     Indication: ILL-DEFINED DISORDER
     Dates: end: 20060101

REACTIONS (4)
  - DIFFICULTY IN WALKING [None]
  - DYSARTHRIA [None]
  - EYE DISORDER [None]
  - HEARING IMPAIRED [None]
